FAERS Safety Report 6547055-6 (Version None)
Quarter: 2010Q1

REPORT INFORMATION
  Report Type: 
  Country: None (occurrence: None)
  Receive Date: 20100122
  Receipt Date: 20100108
  Transmission Date: 20100710
  Serious: Yes (Other)
  Sender: FDA-Public Use
  Company Number: FR-ABBOTT-10P-087-0619080-00

PATIENT
  Age: 74 Year
  Sex: Female

DRUGS (8)
  1. AKINETON [Suspect]
     Indication: DRUG USE FOR UNKNOWN INDICATION
     Route: 048
     Dates: start: 20090421, end: 20090626
  2. DEPAKENE [Suspect]
     Indication: DRUG USE FOR UNKNOWN INDICATION
     Route: 048
     Dates: start: 20090421, end: 20090708
  3. URBANYL [Suspect]
     Indication: DRUG USE FOR UNKNOWN INDICATION
     Route: 048
     Dates: start: 20090429, end: 20090623
  4. STILNOX [Suspect]
     Indication: DRUG USE FOR UNKNOWN INDICATION
     Route: 048
     Dates: start: 20090421, end: 20090713
  5. RISPERDAL [Suspect]
     Indication: DRUG USE FOR UNKNOWN INDICATION
     Route: 048
     Dates: start: 20090423
  6. RISPERDAL [Suspect]
     Route: 048
  7. RISPERDAL [Suspect]
     Route: 048
     Dates: end: 20090626
  8. TIAPRIDE PANPHARMA [Suspect]
     Indication: DRUG USE FOR UNKNOWN INDICATION
     Route: 048
     Dates: start: 20090608, end: 20090623

REACTIONS (1)
  - THROMBOCYTOPENIA [None]
